FAERS Safety Report 7645897-7 (Version None)
Quarter: 2011Q3

REPORT INFORMATION
  Report Type: 
  Country: None (occurrence: None)
  Receive Date: 20110729
  Receipt Date: 20110719
  Transmission Date: 20111222
  Serious: Yes (Hospitalization, Other)
  Sender: FDA-Public Use
  Company Number: US-BAYER-2011-053817

PATIENT
  Age: 24 Year
  Sex: Female
  Weight: 83 kg

DRUGS (6)
  1. ALBUTEROL SULFATE AUTOHALER [Concomitant]
     Indication: ASTHMA
     Dosage: UNK UNK, PRN
  2. NEXIUM [Concomitant]
     Indication: GASTRIC DISORDER
     Dosage: UNK UNK, QD
     Route: 048
  3. ADVAIR DISKUS 100/50 [Concomitant]
     Indication: ASTHMA
     Dosage: UNK UNK, BID
  4. FLONASE [Concomitant]
     Indication: NASAL CONGESTION
     Dosage: UNK UNK, QD
  5. AZITHROMYCIN [Concomitant]
     Dosage: 250 MG, UNK
     Route: 048
     Dates: start: 20090725
  6. YAZ [Suspect]
     Indication: ACNE
     Dosage: UNK
     Route: 048
     Dates: start: 20090603, end: 20090727

REACTIONS (8)
  - PAIN [None]
  - PULMONARY EMBOLISM [None]
  - PSYCHIATRIC SYMPTOM [None]
  - INJURY [None]
  - EMOTIONAL DISTRESS [None]
  - DYSPNOEA [None]
  - FEAR OF DISEASE [None]
  - ANXIETY [None]
